FAERS Safety Report 13103725 (Version 2)
Quarter: 2017Q3

REPORT INFORMATION
  Report Type: Report from Study
  Country: None (occurrence: BR)
  Receive Date: 20170111
  Receipt Date: 20170824
  Transmission Date: 20171127
  Serious: Yes (Hospitalization, Disabling, Congenital Anomaly, Other)
  Sender: FDA-Public Use
  Company Number: BR-ABBVIE-17P-020-1831299-00

PATIENT
  Age: 66 Year
  Sex: Female
  Weight: 44 kg

DRUGS (5)
  1. HUMIRA [Suspect]
     Active Substance: ADALIMUMAB
     Indication: RHEUMATOID ARTHRITIS
     Route: 058
     Dates: start: 20070701
  2. PREGABALIN. [Concomitant]
     Active Substance: PREGABALIN
     Indication: PAIN
  3. HUMIRA [Suspect]
     Active Substance: ADALIMUMAB
     Route: 058
  4. METHOTREXATE. [Concomitant]
     Active Substance: METHOTREXATE
     Indication: RHEUMATIC DISORDER
  5. PREGABALIN. [Concomitant]
     Active Substance: PREGABALIN
     Indication: ANXIETY

REACTIONS (19)
  - Hypophagia [Not Recovered/Not Resolved]
  - Tongue dry [Not Recovered/Not Resolved]
  - Tongue disorder [Not Recovered/Not Resolved]
  - Temporomandibular joint syndrome [Not Recovered/Not Resolved]
  - Limb asymmetry [Recovering/Resolving]
  - Joint effusion [Not Recovered/Not Resolved]
  - Arthropathy [Recovering/Resolving]
  - Dental prosthesis placement [Unknown]
  - Gastrooesophageal reflux disease [Not Recovered/Not Resolved]
  - Joint instability [Recovering/Resolving]
  - Joint stiffness [Recovering/Resolving]
  - Oesophageal candidiasis [Not Recovered/Not Resolved]
  - Arthritis [Unknown]
  - Facial paralysis [Recovering/Resolving]
  - Weight decreased [Not Recovered/Not Resolved]
  - Insomnia [Unknown]
  - Osteoarthritis [Unknown]
  - Body height decreased [Not Recovered/Not Resolved]
  - Pain [Recovering/Resolving]

NARRATIVE: CASE EVENT DATE: 201601
